FAERS Safety Report 9953956 (Version 2)
Quarter: 2014Q1

REPORT INFORMATION
  Report Type: Spontaneous
  Country: US (occurrence: US)
  Receive Date: 20140304
  Receipt Date: 20140324
  Transmission Date: 20141002
  Serious: Yes (Other)
  Sender: FDA-Public Use
  Company Number: US-PFIZER INC-2014060018

PATIENT
  Age: 64 Year
  Sex: Male
  Weight: 95 kg

DRUGS (4)
  1. XALATAN [Suspect]
     Indication: OPEN ANGLE GLAUCOMA
     Dosage: 1 GTT, 1X/DAY
     Route: 047
     Dates: end: 200603
  2. XALATAN [Suspect]
     Dosage: UNK
     Dates: start: 2000, end: 200603
  3. COSOPT [Concomitant]
     Indication: EYE DISORDER
     Dosage: 1 GTT, 2X/DAY (IN EACH EYE)
  4. ALPHAGAN [Concomitant]
     Indication: EYE DISORDER
     Dosage: 1 GTT, 3X/DAY

REACTIONS (2)
  - Blindness unilateral [Not Recovered/Not Resolved]
  - Cataract [Recovered/Resolved]
